FAERS Safety Report 12605311 (Version 2)
Quarter: 2016Q3

REPORT INFORMATION
  Report Type: Spontaneous
  Country: US (occurrence: US)
  Receive Date: 20160729
  Receipt Date: 20160804
  Transmission Date: 20161109
  Serious: Yes (Hospitalization, Other)
  Sender: FDA-Public Use
  Company Number: US-ROCHE-1804407

PATIENT
  Age: 17 Year
  Sex: Female
  Weight: 49 kg

DRUGS (1)
  1. NUTROPIN [Suspect]
     Active Substance: SOMATROPIN
     Indication: TURNER^S SYNDROME
     Dosage: 6 DAYS A WEEK
     Route: 058

REACTIONS (3)
  - Pulmonary function test decreased [Unknown]
  - Cough [Recovered/Resolved]
  - Blood corticosterone increased [Unknown]

NARRATIVE: CASE EVENT DATE: 201601
